FAERS Safety Report 26068400 (Version 1)
Quarter: 2025Q4

REPORT INFORMATION
  Report Type: Spontaneous
  Country: JP (occurrence: JP)
  Receive Date: 20251120
  Receipt Date: 20251120
  Transmission Date: 20260118
  Serious: Yes (Life-Threatening, Hospitalization, Other)
  Sender: CADILA
  Company Number: JP-CPL-005921

PATIENT
  Age: 83 Year
  Sex: Male
  Weight: 66.5 kg

DRUGS (9)
  1. ACYCLOVIR [Suspect]
     Active Substance: ACYCLOVIR
     Indication: Herpes simplex encephalitis
  2. ANAGLIPTIN [Concomitant]
     Active Substance: ANAGLIPTIN
     Indication: Type 2 diabetes mellitus
  3. METFORMIN [Concomitant]
     Active Substance: METFORMIN HYDROCHLORIDE
     Indication: Type 2 diabetes mellitus
  4. ATORVASTATIN [Concomitant]
     Active Substance: ATORVASTATIN
     Indication: Dyslipidaemia
  5. ESOMEPRAZOLE [Concomitant]
     Active Substance: ESOMEPRAZOLE
     Indication: Gastrooesophageal reflux disease
  6. TAMSULOSIN [Concomitant]
     Active Substance: TAMSULOSIN
     Indication: Benign prostatic hyperplasia
  7. CHLORMADINONE [Concomitant]
     Active Substance: CHLORMADINONE
     Indication: Benign prostatic hyperplasia
  8. MEROPENEM [Concomitant]
     Active Substance: MEROPENEM
     Indication: Herpes simplex encephalitis
     Dosage: 2 GRAM EVERY 8 HOURS
  9. VANCOMYCIN [Concomitant]
     Active Substance: VANCOMYCIN
     Indication: Herpes simplex encephalitis

REACTIONS (4)
  - Toxic encephalopathy [Unknown]
  - Glossoptosis [Unknown]
  - Respiratory distress [Unknown]
  - Acute kidney injury [Unknown]
